FAERS Safety Report 8424185-5 (Version None)
Quarter: 2012Q2

REPORT INFORMATION
  Report Type: 
  Country: None (occurrence: None)
  Receive Date: 20120608
  Receipt Date: 20120313
  Transmission Date: 20120825
  Serious: No
  Sender: FDA-Public Use
  Company Number: US-ASTRAZENECA-2012SE17270

PATIENT
  Sex: Female

DRUGS (5)
  1. PEPSIDASE [Concomitant]
     Indication: GASTROOESOPHAGEAL REFLUX DISEASE
  2. LORAZEPAM [Concomitant]
  3. ACCOLATE [Suspect]
     Indication: ASTHMA
     Route: 048
  4. SYNTHROID [Concomitant]
  5. PULMICORT FLEXHALER [Suspect]
     Indication: ASTHMA
     Route: 055
     Dates: start: 20120124

REACTIONS (2)
  - BLOOD THYROID STIMULATING HORMONE DECREASED [None]
  - BLOOD IRON DECREASED [None]
